FAERS Safety Report 5424946-0 (Version None)
Quarter: 2007Q3

REPORT INFORMATION
  Report Type: 
  Country: None (occurrence: None)
  Receive Date: 20070824
  Receipt Date: 20070816
  Transmission Date: 20080115
  Serious: Yes (Hospitalization)
  Sender: FDA-Public Use
  Company Number: A0671205A

PATIENT
  Sex: Male

DRUGS (16)
  1. AVANDIA [Suspect]
     Dosage: 2MG PER DAY
     Route: 048
  2. METFORMIN HCL [Concomitant]
  3. ZETIA [Concomitant]
  4. FELODIPINE [Concomitant]
  5. NIACIN [Concomitant]
  6. COREG [Concomitant]
  7. TAMSULOSIN HCL [Concomitant]
  8. PLAVIX [Concomitant]
  9. OMEPRAZOLE [Concomitant]
  10. UNSPECIFIED MEDICATION [Concomitant]
  11. POTASSIUM CL [Concomitant]
  12. LISINOPRIL [Concomitant]
  13. SIMVASTATIN [Concomitant]
  14. ISOSORBIDE DINITRATE [Concomitant]
  15. NITROGLYCERIN [Concomitant]
  16. ASPIRIN [Concomitant]

REACTIONS (2)
  - CORONARY ARTERY BYPASS [None]
  - STENT PLACEMENT [None]
